FAERS Safety Report 8652238 (Version 4)
Quarter: 2014Q2

REPORT INFORMATION
  Report Type: Spontaneous
  Country: US (occurrence: US)
  Receive Date: 20120706
  Receipt Date: 20140403
  Transmission Date: 20141212
  Serious: Yes (Other)
  Sender: FDA-Public Use
  Company Number: US-US-EMD SERONO, INC.-7144250

PATIENT
  Sex: Female

DRUGS (3)
  1. REBIF [Suspect]
     Indication: MULTIPLE SCLEROSIS
     Route: 058
     Dates: start: 20100525, end: 201402
  2. TOVIAZ [Concomitant]
     Indication: BLADDER DISORDER
  3. ESTER C [Concomitant]
     Indication: IMMUNE ENHANCEMENT THERAPY

REACTIONS (4)
  - Type 1 diabetes mellitus [Recovering/Resolving]
  - Ocular icterus [Unknown]
  - Weight decreased [Unknown]
  - Vitamin D deficiency [Unknown]
